FAERS Safety Report 8538479-6 (Version None)
Quarter: 2012Q3

REPORT INFORMATION
  Report Type: 
  Country: None (occurrence: None)
  Receive Date: 20120718
  Receipt Date: 20120718
  Transmission Date: 20120928
  Serious: Yes (Hospitalization)
  Sender: FDA-Public Use
  Company Number: None

PATIENT
  Age: 64 Year
  Sex: Female
  Weight: 81.6475 kg

DRUGS (1)
  1. AVELOX [Suspect]
     Indication: LOBAR PNEUMONIA
     Dosage: 400MG DAILY P.O.
     Route: 048
     Dates: start: 20120309, end: 20120318

REACTIONS (1)
  - ATRIAL FIBRILLATION [None]
